FAERS Safety Report 9760883 (Version 2)
Quarter: 2013Q4

REPORT INFORMATION
  Report Type: Spontaneous
  Country: JP (occurrence: JP)
  Receive Date: 20131216
  Receipt Date: 20131216
  Transmission Date: 20140711
  Serious: Yes (Disabling)
  Sender: FDA-Public Use
  Company Number: JP-ABBVIE-13P-087-1074944-00

PATIENT
  Age: 48 Year
  Sex: Female
  Weight: 50 kg

DRUGS (1)
  1. LEUPLIN FOR INJECTION KIT 1.88 (LEUPRORELIN ACETATE) INJECTION [Suspect]
     Indication: MENORRHAGIA
     Route: 058
     Dates: start: 20121221

REACTIONS (1)
  - Dermatitis contact [Recovering/Resolving]
